FAERS Safety Report 25655768 (Version 1)
Quarter: 2025Q3

REPORT INFORMATION
  Report Type: Spontaneous
  Country: US (occurrence: US)
  Receive Date: 20250807
  Receipt Date: 20250807
  Transmission Date: 20251020
  Serious: Yes (Other)
  Sender: DR REDDYS
  Company Number: None

PATIENT
  Age: 72 Year
  Sex: Male

DRUGS (5)
  1. RISPERIDONE [Suspect]
     Active Substance: RISPERIDONE
     Indication: Agitation
  2. RISPERIDONE [Suspect]
     Active Substance: RISPERIDONE
     Indication: Paranoia
     Dosage: TITRATED UP TO 2 MG AT NIGHT
  3. VALPROIC ACID [Suspect]
     Active Substance: VALPROIC ACID
     Indication: Mood swings
     Dosage: AT NIGHT
  4. VALPROIC ACID [Suspect]
     Active Substance: VALPROIC ACID
     Indication: Behaviour disorder
  5. MIRTAZAPINE [Suspect]
     Active Substance: MIRTAZAPINE
     Indication: Depressive symptom

REACTIONS (1)
  - Cytopenia [Recovering/Resolving]
